FAERS Safety Report 23354088 (Version 1)
Quarter: 2024Q1

REPORT INFORMATION
  Report Type: Report from Study
  Country: FR (occurrence: FR)
  Receive Date: 20240101
  Receipt Date: 20240101
  Transmission Date: 20240409
  Serious: Yes (Other)
  Sender: FDA-Public Use
  Company Number: FR-GTI-000015

PATIENT
  Age: 32 Year
  Sex: Male

DRUGS (10)
  1. PREDNISONE [Suspect]
     Active Substance: PREDNISONE
     Indication: Still^s disease
     Route: 048
  2. ANAKINRA [Suspect]
     Active Substance: ANAKINRA
     Indication: Still^s disease
     Route: 065
  3. CANAKINUMAB [Suspect]
     Active Substance: CANAKINUMAB
     Indication: Still^s disease
     Route: 065
  4. TOCILIZUMAB [Suspect]
     Active Substance: TOCILIZUMAB
     Indication: Still^s disease
     Route: 065
  5. ADALIMUMAB [Suspect]
     Active Substance: ADALIMUMAB\ISOPROPYL ALCOHOL
     Indication: Still^s disease
     Route: 065
  6. METHOTREXATE [Suspect]
     Active Substance: METHOTREXATE
     Indication: Still^s disease
     Route: 065
  7. COLCHICINE [Suspect]
     Active Substance: COLCHICINE
     Indication: Still^s disease
     Route: 065
  8. CYCLOSPORINE [Suspect]
     Active Substance: CYCLOSPORINE
     Indication: Still^s disease
     Route: 065
  9. BARICITINIB [Suspect]
     Active Substance: BARICITINIB
     Indication: Still^s disease
     Route: 065
  10. UPADACITINIB [Suspect]
     Active Substance: UPADACITINIB
     Indication: Still^s disease
     Route: 065

REACTIONS (6)
  - Still^s disease [Recovering/Resolving]
  - Therapy partial responder [Recovering/Resolving]
  - Polyarthritis [Not Recovered/Not Resolved]
  - Hepatitis [Recovering/Resolving]
  - Pharyngitis [Recovering/Resolving]
  - C-reactive protein increased [Not Recovered/Not Resolved]
